FAERS Safety Report 16173284 (Version 1)
Quarter: 2019Q2

REPORT INFORMATION
  Report Type: Spontaneous
  Country: US (occurrence: US)
  Receive Date: 20190306
  Receipt Date: 20190306
  Transmission Date: 20190711
  Serious: No
  Sender: FDA-Public Use
  Company Number: None

PATIENT
  Age: 52 Year
  Sex: Male

DRUGS (1)
  1. KETOROLAC [Suspect]
     Active Substance: KETOROLAC\KETOROLAC TROMETHAMINE

REACTIONS (11)
  - Chest discomfort [None]
  - Dyspnoea [None]
  - Pain in extremity [None]
  - Heart rate increased [None]
  - Dizziness [None]
  - Nausea [None]
  - Wrong technique in product usage process [None]
  - Chest pain [None]
  - Fatigue [None]
  - Breast pain [None]
  - Asthenia [None]

NARRATIVE: CASE EVENT DATE: 20181203
